FAERS Safety Report 16814882 (Version 4)
Quarter: 2019Q4

REPORT INFORMATION
  Report Type: Spontaneous
  Country: US (occurrence: US)
  Receive Date: 20190917
  Receipt Date: 20191111
  Transmission Date: 20200122
  Serious: Yes (Other)
  Sender: FDA-Public Use
  Company Number: US-PFIZER INC-2019396544

PATIENT
  Age: 46 Year
  Sex: Male

DRUGS (2)
  1. BENEFIX [Suspect]
     Active Substance: COAGULATION FACTOR IX RECOMBINANT HUMAN\ISOPROPYL ALCOHOL
     Indication: HAEMORRHAGE
     Dosage: 100 IU/KG, DAILY (9000 UNITS (+/-10%) = 100 UNITS/KG DAILY)
  2. BENEFIX [Suspect]
     Active Substance: COAGULATION FACTOR IX RECOMBINANT HUMAN\ISOPROPYL ALCOHOL
     Dosage: 100 IU/KG, AS NEEDED (9000 UNITS (+/-10%) = 100 UNITS/KG ON DEMAND)

REACTIONS (1)
  - Haemorrhage [Not Recovered/Not Resolved]
